FAERS Safety Report 8954850 (Version 1)
Quarter: 2012Q4

REPORT INFORMATION
  Report Type: 
  Country: US (occurrence: US)
  Receive Date: 20121210
  Receipt Date: 20121210
  Transmission Date: 20130627
  Serious: Yes (Hospitalization)
  Sender: FDA-Public Use
  Company Number: US-BAYER-2012-127898

PATIENT
  Age: 28 Year
  Sex: Female

DRUGS (5)
  1. BEYAZ [Suspect]
     Dosage: UNK
     Dates: start: 20110127, end: 20120909
  2. YAZ [Suspect]
     Dosage: UNK
     Dates: start: 20100203, end: 20101205
  3. PREDNISONE [Concomitant]
     Dosage: 20 mg, UNK
  4. CLOBETASOL [Concomitant]
     Dosage: 0.05 %, UNK
  5. HYDROXYZINE HCL [Concomitant]
     Dosage: 25 mg, UNK

REACTIONS (1)
  - Deep vein thrombosis [None]
